FAERS Safety Report 8836598 (Version 1)
Quarter: 2012Q4

REPORT INFORMATION
  Report Type: Spontaneous
  Country: TR (occurrence: None)
  Receive Date: 20121009
  Receipt Date: 20121009
  Transmission Date: 20130627
  Serious: Yes (Hospitalization)
  Sender: FDA-Public Use
  Company Number: ENTC2012-0434

PATIENT
  Sex: Female

DRUGS (6)
  1. STALEVO (LEVODOPA, CARBIDOPA, ENTACAPONE) [Suspect]
     Indication: PARKINSON^S DISEASE
  2. COMTAN [Concomitant]
  3. MADOPAR [Concomitant]
  4. PEXOLA [Concomitant]
  5. AZILECT [Concomitant]
  6. CABASER [Concomitant]

REACTIONS (2)
  - Muscle rigidity [None]
  - Depression [None]
